FAERS Safety Report 16865474 (Version 1)
Quarter: 2019Q3

REPORT INFORMATION
  Report Type: Spontaneous
  Country: CA (occurrence: CA)
  Receive Date: 20190930
  Receipt Date: 20190930
  Transmission Date: 20191005
  Serious: Yes (Other)
  Sender: FDA-Public Use
  Company Number: CA-ORION CORPORATION ORION PHARMA-TREX2019-3593

PATIENT
  Age: 68 Year
  Sex: Male

DRUGS (4)
  1. HYDROXYCHLOROQUINE [Concomitant]
     Active Substance: HYDROXYCHLOROQUINE
     Route: 065
     Dates: start: 201805
  2. PLAQUENIL [Concomitant]
     Active Substance: HYDROXYCHLOROQUINE SULFATE
     Route: 065
     Dates: start: 201805
  3. CORTISONE [Concomitant]
     Active Substance: CORTISONE
     Route: 065
  4. METHOTREXATE (TRADE NAME UNKNOWN) [Suspect]
     Active Substance: METHOTREXATE
     Indication: PRODUCT USED FOR UNKNOWN INDICATION
     Dosage: 20 MG Q
     Route: 065
     Dates: start: 201811

REACTIONS (8)
  - Paralysis [Unknown]
  - Immunodeficiency [Unknown]
  - Fatigue [Unknown]
  - Polymyalgia rheumatica [Unknown]
  - Drug ineffective [Unknown]
  - Wrist surgery [Unknown]
  - Somnolence [Unknown]
  - Walking aid user [Unknown]
